FAERS Safety Report 5463070-8 (Version None)
Quarter: 2007Q3

REPORT INFORMATION
  Report Type: 
  Country: None (occurrence: None)
  Receive Date: 20070918
  Receipt Date: 20070918
  Transmission Date: 20080115
  Serious: Yes (Hospitalization)
  Sender: FDA-Public Use
  Company Number: None

PATIENT
  Age: 62 Year
  Sex: Male

DRUGS (1)
  1. QUETIAPINE FUMARATE [Suspect]
     Indication: BIPOLAR DISORDER
     Dosage: 800MG  HS  PO
     Route: 048
     Dates: start: 20070216, end: 20070524

REACTIONS (3)
  - ABNORMAL BEHAVIOUR [None]
  - AKATHISIA [None]
  - CONFUSIONAL STATE [None]
